FAERS Safety Report 7574148-7 (Version None)
Quarter: 2011Q2

REPORT INFORMATION
  Report Type: 
  Country: None (occurrence: None)
  Receive Date: 20110627
  Receipt Date: 20110616
  Transmission Date: 20111010
  Serious: Yes (Other)
  Sender: FDA-Public Use
  Company Number: PT-TEVA-286911ISR

PATIENT
  Sex: Female

DRUGS (13)
  1. PREDNISONE [Concomitant]
     Route: 048
  2. ENALAPRIL MALEATE [Concomitant]
  3. PENTOXIFYLLINE [Concomitant]
     Route: 048
  4. MYFENAX [Suspect]
     Indication: LUPUS NEPHRITIS
     Dosage: 2000 MILLIGRAM;
     Route: 048
     Dates: start: 20110309
  5. PANTOPRAZOLE [Concomitant]
     Route: 048
  6. ALISKIREN [Concomitant]
     Route: 048
  7. ESCITALOPRAM [Concomitant]
     Route: 048
  8. GABAPENTIN [Concomitant]
     Route: 048
  9. WARFARIN SODIUM [Concomitant]
     Route: 048
  10. HYDROXYCHLOROQUINE SULFATE [Concomitant]
     Route: 048
  11. MAGNESIUM CHLORIDE HEXAHYDRATE [Concomitant]
     Route: 048
  12. COTRIM [Concomitant]
     Route: 048
  13. DILTIAZEM [Concomitant]
     Route: 048

REACTIONS (2)
  - PROTEINURIA [None]
  - DRUG INEFFECTIVE [None]
